FAERS Safety Report 13497581 (Version 10)
Quarter: 2018Q4

REPORT INFORMATION
  Report Type: Spontaneous
  Country: US (occurrence: US)
  Receive Date: 20170428
  Receipt Date: 20181012
  Transmission Date: 20190204
  Serious: Yes (Hospitalization, Other)
  Sender: FDA-Public Use
  Company Number: US-PFIZER INC-2017177306

PATIENT
  Age: 66 Year
  Sex: Female

DRUGS (3)
  1. IBRANCE [Suspect]
     Active Substance: PALBOCICLIB
     Indication: BREAST CANCER METASTATIC
     Dosage: 125 MG, CYCLIC (21 DAYS ON AND 7 DAYS OFF)
     Route: 048
     Dates: start: 201611, end: 201802
  2. FULVESTRANT. [Concomitant]
     Active Substance: FULVESTRANT
     Indication: BREAST CANCER METASTATIC
     Dosage: 500 MG, MONTHLY
     Dates: start: 201611
  3. FASLODEX [Suspect]
     Active Substance: FULVESTRANT
     Dosage: UNK

REACTIONS (18)
  - Lymphoedema [Unknown]
  - Asthenia [Unknown]
  - Therapeutic response unexpected [Unknown]
  - Pre-existing condition improved [Unknown]
  - Cellulitis [Unknown]
  - Pharyngitis streptococcal [Unknown]
  - Dysstasia [Not Recovered/Not Resolved]
  - Alopecia [Unknown]
  - Pain [Unknown]
  - Oedema [Unknown]
  - Discomfort [Unknown]
  - Gallbladder disorder [Recovered/Resolved with Sequelae]
  - Sleep disorder [Unknown]
  - Confusional state [Unknown]
  - Depression [Unknown]
  - Stress [Unknown]
  - Blood glucose increased [Unknown]
  - Nausea [Unknown]

NARRATIVE: CASE EVENT DATE: 2017
